FAERS Safety Report 17773861 (Version 2)
Quarter: 2020Q2

REPORT INFORMATION
  Report Type: Report from Study
  Country: US (occurrence: US)
  Receive Date: 20200513
  Receipt Date: 20200518
  Transmission Date: 20200714
  Serious: Yes (Hospitalization)
  Sender: FDA-Public Use
  Company Number: US-HORIZON-KRY-0634-2020

PATIENT
  Age: 71 Year
  Sex: Female

DRUGS (1)
  1. KRYSTEXXA [Suspect]
     Active Substance: PEGLOTICASE
     Indication: PRODUCT USED FOR UNKNOWN INDICATION
     Dosage: 8MG Q2WEEKS
     Dates: start: 20200311, end: 20200324

REACTIONS (5)
  - Gait inability [Unknown]
  - Confusional state [Unknown]
  - Weight increased [Unknown]
  - Gout [Unknown]
  - Agitation [Unknown]

NARRATIVE: CASE EVENT DATE: 202003
